FAERS Safety Report 7502532-6 (Version None)
Quarter: 2011Q1

REPORT INFORMATION
  Report Type: 
  Country: None (occurrence: None)
  Receive Date: 20110318
  Receipt Date: 20100429
  Transmission Date: 20110831
  Serious: Yes (Other)
  Sender: FDA-Public Use
  Company Number: 2010SP024361

PATIENT
  Age: 59 Year
  Sex: Female
  Weight: 74.3899 kg

DRUGS (6)
  1. NIFEDIPINE [Concomitant]
  2. LISINOPRIL [Concomitant]
  3. ATENOLOL [Concomitant]
  4. PEG-INTRON [Suspect]
     Indication: PRODUCT USED FOR UNKNOWN INDICATION
  5. RIBAVIRIN [Suspect]
     Indication: HEPATITIS C
     Dosage: 1000 MG;QD;PO
     Route: 048
     Dates: end: 20100420
  6. DIOVAN [Concomitant]

REACTIONS (1)
  - HAEMOGLOBIN DECREASED [None]
